FAERS Safety Report 18530496 (Version 1)
Quarter: 2020Q4

REPORT INFORMATION
  Report Type: Spontaneous
  Country: DE (occurrence: DE)
  Receive Date: 20201121
  Receipt Date: 20201121
  Transmission Date: 20210114
  Serious: Yes (Life-Threatening, Hospitalization, Other)
  Sender: FDA-Public Use
  Company Number: DE-LUPIN PHARMACEUTICALS INC.-2020-09181

PATIENT
  Age: 51 Year
  Sex: Male

DRUGS (3)
  1. NATALIZUMAB [Concomitant]
     Active Substance: NATALIZUMAB
     Indication: MULTIPLE SCLEROSIS RELAPSE
     Dosage: UNK
     Route: 065
     Dates: start: 2012, end: 2017
  2. METHYLPREDNISOLONE. [Suspect]
     Active Substance: METHYLPREDNISOLONE
     Indication: MULTIPLE SCLEROSIS RELAPSE
     Dosage: 1000 MILLIGRAM, QD (ADMINISTERED FOR FIVE CONSECUTIVE DAYS)
     Route: 042
  3. FINGOLIMOD. [Suspect]
     Active Substance: FINGOLIMOD
     Indication: RELAPSING-REMITTING MULTIPLE SCLEROSIS
     Dosage: UNK
     Route: 065

REACTIONS (7)
  - Quadriplegia [Not Recovered/Not Resolved]
  - Human herpesvirus 6 infection [Unknown]
  - Gaze palsy [Unknown]
  - Respiratory failure [Unknown]
  - Mutism [Unknown]
  - Tumefactive multiple sclerosis [Unknown]
  - Pneumonia aspiration [Unknown]
